FAERS Safety Report 12882262 (Version 2)
Quarter: 2016Q4

REPORT INFORMATION
  Report Type: Spontaneous
  Country: JP (occurrence: JP)
  Receive Date: 20161025
  Receipt Date: 20161102
  Transmission Date: 20170207
  Serious: Yes (Other)
  Sender: FDA-Public Use
  Company Number: PHJP2016JP030145

PATIENT
  Age: 77 Year
  Sex: Male

DRUGS (4)
  1. CICLOSPORIN [Suspect]
     Active Substance: CYCLOSPORINE
     Indication: APLASTIC ANAEMIA
     Dosage: UNK
     Route: 065
  2. THYMOGLOBULINE [Suspect]
     Active Substance: LAPINE T-LYMPHOCYTE IMMUNE GLOBULIN
     Indication: IMMUNOSUPPRESSANT DRUG THERAPY
  3. CICLOSPORIN [Suspect]
     Active Substance: CYCLOSPORINE
     Indication: IMMUNOSUPPRESSANT DRUG THERAPY
  4. THYMOGLOBULINE [Suspect]
     Active Substance: LAPINE T-LYMPHOCYTE IMMUNE GLOBULIN
     Indication: APLASTIC ANAEMIA
     Dosage: UNK
     Route: 065

REACTIONS (10)
  - Cytomegalovirus infection [Unknown]
  - Oral pain [Recovering/Resolving]
  - Hypophagia [Unknown]
  - Oesophageal ulcer [Unknown]
  - Abdominal discomfort [Recovering/Resolving]
  - Oral disorder [Recovering/Resolving]
  - Herpes virus infection [Unknown]
  - Product use issue [Unknown]
  - Haemorrhagic erosive gastritis [Unknown]
  - Odynophagia [Recovering/Resolving]
